FAERS Safety Report 8757406 (Version 1)
Quarter: 2012Q4

REPORT INFORMATION
  Report Type: 
  Country: GB (occurrence: GB)
  Receive Date: 20120828
  Receipt Date: 20120828
  Transmission Date: 20130627
  Serious: Yes (Other)
  Sender: FDA-Public Use
  Company Number: GB-MYLANLABS-2012S1016883

PATIENT
  Sex: Female

DRUGS (2)
  1. WARFARIN [Suspect]
     Indication: ANTICOAGULANT THERAPY
     Route: 065
  2. ASPIRIN [Concomitant]
     Dosage: low dose
     Route: 065

REACTIONS (2)
  - Left ventricular dysfunction [Recovering/Resolving]
  - Exposure during pregnancy [Recovered/Resolved]
